FAERS Safety Report 6463079-1 (Version None)
Quarter: 2009Q4

REPORT INFORMATION
  Report Type: 
  Country: None (occurrence: None)
  Receive Date: 20091130
  Receipt Date: 20090430
  Transmission Date: 20100525
  Serious: Yes (Other)
  Sender: FDA-Public Use
  Company Number: US-AMGEN-QUU345250

PATIENT
  Sex: Female

DRUGS (5)
  1. ENBREL [Suspect]
     Indication: RHEUMATOID ARTHRITIS
     Route: 058
     Dates: start: 20090128
  2. ENBREL [Suspect]
     Indication: SYSTEMIC LUPUS ERYTHEMATOSUS
  3. PLAQUENIL [Concomitant]
  4. CELLCEPT [Concomitant]
  5. METHOTREXATE [Concomitant]
     Route: 058

REACTIONS (12)
  - DEPRESSION [None]
  - FATIGUE [None]
  - FURUNCLE [None]
  - HYPERSENSITIVITY [None]
  - IRRITABILITY [None]
  - MENTAL IMPAIRMENT [None]
  - PALPITATIONS [None]
  - PANIC REACTION [None]
  - RHEUMATOID ARTHRITIS [None]
  - SEASONAL ALLERGY [None]
  - SOMNOLENCE [None]
  - URINARY TRACT INFECTION [None]
